FAERS Safety Report 10618701 (Version 2)
Quarter: 2014Q4

REPORT INFORMATION
  Report Type: Report from Study
  Country: CA (occurrence: CA)
  Receive Date: 20141202
  Receipt Date: 20141223
  Transmission Date: 20150529
  Serious: Yes (Other)
  Sender: FDA-Public Use
  Company Number: CA-BAYER-2014-172314

PATIENT
  Age: 28 Year
  Sex: Female

DRUGS (5)
  1. BETADINE [Concomitant]
     Active Substance: POVIDONE-IODINE
     Indication: STERILISATION
     Dosage: UNK
     Route: 061
     Dates: start: 20141124, end: 20141124
  2. POVIDONE IODINE [Concomitant]
     Active Substance: POVIDONE-IODINE
     Indication: STERILISATION
     Dosage: UNK UNK, TID
     Route: 061
     Dates: start: 20141117, end: 20141117
  3. MIRENA [Suspect]
     Active Substance: LEVONORGESTREL
     Indication: CONTRACEPTION
     Dosage: 20 MCG/24HR, CONT
     Route: 015
     Dates: start: 20140908, end: 20141117
  4. BETADINE [Concomitant]
     Active Substance: POVIDONE-IODINE
     Indication: STERILISATION
     Dosage: UNK
     Route: 061
     Dates: start: 20140908, end: 20140908
  5. MIRENA [Suspect]
     Active Substance: LEVONORGESTREL
     Indication: CONTRACEPTION
     Dosage: 20 MCG/24HR, CONT
     Route: 015
     Dates: start: 20141124

REACTIONS (20)
  - Vaginal haemorrhage [Recovered/Resolved]
  - Vaginal discharge [Recovered/Resolved]
  - Device difficult to use [Recovered/Resolved]
  - Vaginal disorder [None]
  - Dyspareunia [Recovered/Resolved]
  - Chills [Recovered/Resolved]
  - Medical device discomfort [Recovered/Resolved]
  - Post procedural haemorrhage [Recovered/Resolved]
  - Post procedural haemorrhage [None]
  - Device expulsion [Recovered/Resolved]
  - Hyperhidrosis [Recovered/Resolved]
  - Abdominal distension [Recovered/Resolved]
  - Pelvic fluid collection [None]
  - Abdominal pain [Recovered/Resolved]
  - Decreased appetite [Recovered/Resolved]
  - Uterine disorder [None]
  - Malaise [Recovered/Resolved]
  - Pyrexia [Recovered/Resolved]
  - Device dislocation [Recovered/Resolved]
  - Bacterial vaginosis [Recovered/Resolved]

NARRATIVE: CASE EVENT DATE: 2014
